FAERS Safety Report 17339536 (Version 1)
Quarter: 2020Q1

REPORT INFORMATION
  Report Type: Spontaneous
  Country: US (occurrence: US)
  Receive Date: 20200129
  Receipt Date: 20200129
  Transmission Date: 20200409
  Serious: No
  Sender: FDA-Public Use
  Company Number: US-APOTEX-2019AP016611

PATIENT
  Sex: Male

DRUGS (3)
  1. PROPECIA [Suspect]
     Active Substance: FINASTERIDE
     Indication: PRODUCT USED FOR UNKNOWN INDICATION
     Dosage: UNK
     Route: 065
  2. AVODART [Suspect]
     Active Substance: DUTASTERIDE
     Indication: ALOPECIA
     Dosage: UNK
     Route: 065
     Dates: start: 2005
  3. SEROXAT [Suspect]
     Active Substance: PAROXETINE HYDROCHLORIDE
     Indication: DEPRESSION
     Dosage: UNK
     Route: 065

REACTIONS (4)
  - Therapeutic response unexpected [Unknown]
  - Depression [Unknown]
  - Adverse drug reaction [Unknown]
  - Product use in unapproved indication [Unknown]
